APPROVED DRUG PRODUCT: SULFAMETHOXAZOLE AND TRIMETHOPRIM
Active Ingredient: SULFAMETHOXAZOLE; TRIMETHOPRIM
Strength: 200MG/5ML;40MG/5ML
Dosage Form/Route: SUSPENSION;ORAL
Application: A214330 | Product #001 | TE Code: AB
Applicant: NOVITIUM PHARMA LLC
Approved: Feb 8, 2022 | RLD: No | RS: No | Type: RX